FAERS Safety Report 6137345-3 (Version None)
Quarter: 2009Q1

REPORT INFORMATION
  Report Type: 
  Country: None (occurrence: None)
  Receive Date: 20090330
  Receipt Date: 20090327
  Transmission Date: 20090719
  Serious: No
  Sender: FDA-Public Use
  Company Number: US-B.I. PHARMACEUTICALS,INC./RIDGEFIELD-2009-BP-03859BP

PATIENT
  Age: 6 Year
  Sex: Male

DRUGS (1)
  1. ZANTAC 75 [Suspect]
     Dosage: 225MG
     Route: 048

REACTIONS (1)
  - OVERDOSE [None]
